FAERS Safety Report 4549401-1 (Version None)
Quarter: 2005Q1

REPORT INFORMATION
  Report Type: 
  Country: None (occurrence: None)
  Receive Date: 20050110
  Receipt Date: 20050110
  Transmission Date: 20050727
  Serious: Yes (Hospitalization, Disabling, Other)
  Sender: FDA-Public Use
  Company Number: None

PATIENT
  Sex: Male

DRUGS (5)
  1. CHLOR-TRIMETON [Suspect]
     Indication: HYPERSENSITIVITY
     Dosage: UNKNOWN ORAL
     Route: 048
  2. CHLOR-TRIMETON [Suspect]
     Indication: NASOPHARYNGITIS
     Dosage: UNKNOWN ORAL
     Route: 048
  3. TRIAMIIC SYRUP [Suspect]
     Indication: NASOPHARYNGITIS
     Dosage: UNKNOWN
     Route: 065
  4. ALKA SELTZER PLUS COLD + FLU (APAP/CHLORPHENIRAMINE/ORAL SOLUTION [Suspect]
     Indication: HYPERSENSITIVITY
     Dosage: UNKNOWN
     Route: 065
  5. ALKA SELTZER PLUS COLD + FLU (APAP/CHLORPHENIRAMINE/ORAL SOLUTION [Suspect]
     Indication: NASOPHARYNGITIS
     Dosage: UNKNOWN
     Route: 065

REACTIONS (8)
  - ASTHENIA [None]
  - COGNITIVE DISORDER [None]
  - DYSSTASIA [None]
  - FEAR [None]
  - INJURY [None]
  - ISCHAEMIC STROKE [None]
  - NERVOUS SYSTEM DISORDER [None]
  - PAIN [None]
